FAERS Safety Report 6604288-8 (Version None)
Quarter: 2010Q1

REPORT INFORMATION
  Report Type: 
  Country: None (occurrence: None)
  Receive Date: 20100226
  Receipt Date: 20090806
  Transmission Date: 20100710
  Serious: No
  Sender: FDA-Public Use
  Company Number: A0800958A

PATIENT
  Age: 63 Year
  Sex: Female

DRUGS (10)
  1. LAMICTAL CD [Suspect]
     Indication: MENINGIOMA
     Dosage: 150MG TWICE PER DAY
     Route: 048
  2. ASPIRIN [Concomitant]
  3. LEVOTHYROXINE [Concomitant]
  4. LANTUS [Concomitant]
  5. NOVALOX [Concomitant]
  6. TRAMADOL HCL [Concomitant]
  7. LEIODERM [Concomitant]
  8. METOPROLOL TARTRATE [Concomitant]
  9. VAGIFEM [Concomitant]
  10. PEPCID [Concomitant]

REACTIONS (2)
  - BALANCE DISORDER [None]
  - DIZZINESS [None]
